FAERS Safety Report 13302987 (Version 1)
Quarter: 2017Q1

REPORT INFORMATION
  Report Type: Spontaneous
  Country: US (occurrence: US)
  Receive Date: 20170307
  Receipt Date: 20170307
  Transmission Date: 20170428
  Serious: Yes (Other)
  Sender: FDA-Public Use
  Company Number: US-PRESTIGE BRANDS -1063917

PATIENT
  Sex: Male

DRUGS (1)
  1. MURINE TEARS PLUS REDNESS [Suspect]
     Active Substance: POLYVINYL ALCOHOL\POVIDONE\TETRAHYDROZOLINE HYDROCHLORIDE
     Indication: OCULAR HYPERAEMIA
     Route: 047

REACTIONS (2)
  - Blindness transient [Unknown]
  - Visual impairment [Unknown]
